FAERS Safety Report 13212495 (Version 1)
Quarter: 2017Q1

REPORT INFORMATION
  Report Type: Spontaneous
  Country: US (occurrence: US)
  Receive Date: 20170210
  Receipt Date: 20170210
  Transmission Date: 20170428
  Serious: Yes (Life-Threatening, Hospitalization, Other)
  Sender: FDA-Public Use
  Company Number: US-FRESENIUS KABI-FK201701014

PATIENT
  Age: 7 Year

DRUGS (2)
  1. PROPOFOL (MANUFACTURER UNKNOWN) [Suspect]
     Active Substance: PROPOFOL
     Indication: SEDATION
     Route: 065
  2. KETAMINE [Suspect]
     Active Substance: KETAMINE
     Indication: SEDATION

REACTIONS (3)
  - Laryngospasm [Unknown]
  - Aspiration [Unknown]
  - Decreased bronchial secretion [Unknown]
